FAERS Safety Report 11627173 (Version 1)
Quarter: 2015Q4

REPORT INFORMATION
  Report Type: Report from Study
  Country: US (occurrence: US)
  Receive Date: 20151013
  Receipt Date: 20151013
  Transmission Date: 20160304
  Serious: No
  Sender: FDA-Public Use
  Company Number: US-AMGEN-USASL2015010815

PATIENT
  Sex: Female

DRUGS (11)
  1. TAMOXIFEN [Concomitant]
     Active Substance: TAMOXIFEN
     Dosage: UNK
  2. SOLU-MEDROL [Concomitant]
     Active Substance: METHYLPREDNISOLONE SODIUM SUCCINATE
     Dosage: 125 MG, UNK
  3. ZOLADEX [Concomitant]
     Active Substance: GOSERELIN ACETATE
     Dosage: UNK
  4. DOCETAXEL. [Concomitant]
     Active Substance: DOCETAXEL
     Dosage: UNK
  5. NEUPOGEN [Suspect]
     Active Substance: FILGRASTIM
     Indication: BREAST CANCER
     Dosage: 300 UNK, UNK
     Route: 065
     Dates: start: 19981030
  6. TAXOTERE [Concomitant]
     Active Substance: DOCETAXEL
     Dosage: 150 MG, UNK
  7. DECADRON [Concomitant]
     Active Substance: DEXAMETHASONE
     Dosage: 8 MG, 1 IN 1 D
     Route: 048
  8. UROKINASE [Concomitant]
     Active Substance: UROKINASE
     Dosage: UNK
  9. HERCEPTIN [Suspect]
     Active Substance: TRASTUZUMAB
     Indication: BREAST CANCER
     Dosage: LOADING DOSE (215 MG), UNK
     Route: 042
     Dates: start: 19981028
  10. HERCEPTIN [Suspect]
     Active Substance: TRASTUZUMAB
     Dosage: MAINTENANCE DOSE (107 MG), UNK
     Route: 042
  11. HEPARIN [Concomitant]
     Active Substance: HEPARIN SODIUM
     Dosage: 500 IU, UNK

REACTIONS (1)
  - Infection [Unknown]
